FAERS Safety Report 12808989 (Version 1)
Quarter: 2016Q4

REPORT INFORMATION
  Report Type: Report from Study
  Country: US (occurrence: US)
  Receive Date: 20161004
  Receipt Date: 20161004
  Transmission Date: 20170207
  Serious: Yes (Death)
  Sender: FDA-Public Use
  Company Number: US-ACTELION-A-NJ2016-142942

PATIENT
  Age: 92 Year
  Sex: Male

DRUGS (3)
  1. DILTIAZEM. [Concomitant]
     Active Substance: DILTIAZEM
  2. RIOCIGUAT [Concomitant]
     Active Substance: RIOCIGUAT
     Dosage: UNK
     Dates: end: 20160816
  3. TRACLEER [Suspect]
     Active Substance: BOSENTAN
     Indication: PULMONARY ARTERIAL HYPERTENSION
     Dosage: 125 MG, BID
     Route: 048

REACTIONS (1)
  - Death [Fatal]
